FAERS Safety Report 4970689-7 (Version None)
Quarter: 2006Q2

REPORT INFORMATION
  Report Type: 
  Country: None (occurrence: None)
  Receive Date: 20060411
  Receipt Date: 20060411
  Transmission Date: 20061013
  Serious: Yes (Hospitalization, Other)
  Sender: FDA-Public Use
  Company Number: None

PATIENT
  Age: 25 Year
  Sex: Female
  Weight: 61.2356 kg

DRUGS (1)
  1. HABITROL [Suspect]
     Dosage: 21 MG   DAILY   CUTANEOUS
     Route: 003
     Dates: start: 20050928, end: 20050930

REACTIONS (6)
  - CHEST DISCOMFORT [None]
  - HEADACHE [None]
  - NAUSEA [None]
  - RASH [None]
  - SYSTEMIC LUPUS ERYTHEMATOSUS [None]
  - UNEVALUABLE EVENT [None]
